FAERS Safety Report 10195834 (Version 3)
Quarter: 2014Q2

REPORT INFORMATION
  Report Type: Spontaneous
  Country: DE (occurrence: DE)
  Receive Date: 20140527
  Receipt Date: 20140610
  Transmission Date: 20141212
  Serious: Yes (Other)
  Sender: FDA-Public Use
  Company Number: DE-AMGEN-DEUSP2014016699

PATIENT
  Age: 75 Year
  Sex: Male
  Weight: 114 kg

DRUGS (8)
  1. XGEVA [Suspect]
     Indication: METASTASES TO BONE
     Dosage: 120 MG, QMO
     Route: 058
  2. ZOMETA [Concomitant]
     Dosage: UNK UNK, QMO
  3. LEUPRORELIN [Concomitant]
     Dosage: UNK UNK, Q3MO
  4. BICALUTAMIDE [Concomitant]
  5. NITRENDIPINE [Concomitant]
  6. SELECTOL [Concomitant]
     Dosage: UNK UNK, QD
  7. ENAHEXAL                           /00574902/ [Concomitant]
     Dosage: UNK UNK, QD
  8. VITAMIN D                          /00107901/ [Concomitant]

REACTIONS (11)
  - Cushing^s syndrome [Unknown]
  - Osteoarthritis [Unknown]
  - Pleural effusion [Unknown]
  - Pulmonary mass [Unknown]
  - Pituitary enlargement [Unknown]
  - Obesity [Unknown]
  - Chest pain [Unknown]
  - Osteolysis [Unknown]
  - Mass [Unknown]
  - Bone erosion [Unknown]
  - Weight increased [Unknown]
